FAERS Safety Report 17610374 (Version 1)
Quarter: 2020Q2

REPORT INFORMATION
  Report Type: Spontaneous
  Country: US (occurrence: US)
  Receive Date: 20200401
  Receipt Date: 20200401
  Transmission Date: 20200713
  Serious: No
  Sender: FDA-Public Use
  Company Number: US-PFIZER INC-2020129724

PATIENT
  Age: 18 Year
  Sex: Female
  Weight: 122.4 kg

DRUGS (3)
  1. MEDROXYPROGESTERONE [Suspect]
     Active Substance: MEDROXYPROGESTERONE
     Indication: MENSTRUAL DISORDER
     Dosage: 1 CAPSULE EACH NIGHT (7 TO 11 DOSES)
     Route: 048
     Dates: start: 2019
  2. METFORMIN [Suspect]
     Active Substance: METFORMIN HYDROCHLORIDE
     Indication: OVULATION DISORDER
     Dosage: UNK
  3. DEPO-PROVERA [Suspect]
     Active Substance: MEDROXYPROGESTERONE ACETATE
     Indication: POLYMENORRHOEA
     Dosage: UNK, EVERY THREE MONTHS
     Route: 030
     Dates: start: 20180101, end: 2018

REACTIONS (7)
  - Weight increased [Unknown]
  - Back pain [Not Recovered/Not Resolved]
  - Arthropathy [Unknown]
  - Amenorrhoea [Not Recovered/Not Resolved]
  - Gait disturbance [Unknown]
  - Off label use [Unknown]
  - Product use in unapproved indication [Unknown]

NARRATIVE: CASE EVENT DATE: 201801
